FAERS Safety Report 19143606 (Version 1)
Quarter: 2021Q2

REPORT INFORMATION
  Report Type: Spontaneous
  Country: US (occurrence: US)
  Receive Date: 20210416
  Receipt Date: 20210416
  Transmission Date: 20210717
  Serious: No
  Sender: FDA-Public Use
  Company Number: US-009507513-2103USA006144

PATIENT
  Sex: Female
  Weight: 110.39 kg

DRUGS (1)
  1. KEYTRUDA [Suspect]
     Active Substance: PEMBROLIZUMAB
     Indication: ENDOMETRIAL CANCER
     Dosage: 200 MILLIGRAM, Q3W
     Dates: start: 20200326

REACTIONS (2)
  - Blood pressure increased [Recovering/Resolving]
  - Lymphoedema [Recovering/Resolving]
